FAERS Safety Report 5863439-3 (Version None)
Quarter: 2008Q3

REPORT INFORMATION
  Report Type: 
  Country: None (occurrence: None)
  Receive Date: 20080828
  Receipt Date: 20080822
  Transmission Date: 20090109
  Serious: Yes (Hospitalization)
  Sender: FDA-Public Use
  Company Number: PHHY2008SE18895

PATIENT
  Sex: Male

DRUGS (11)
  1. SANDIMMUNE [Suspect]
  2. KOLKICIN [Suspect]
     Dosage: 3-4 TIMES DAILY
  3. TRYPTIZOL [Concomitant]
  4. ZYLORIC ^FRESENIUS^ [Concomitant]
  5. PREDNISOLON [Concomitant]
  6. KALCIPOS [Concomitant]
  7. TRIOBE [Concomitant]
  8. ATENOLOL ^NM PHARMA^ [Concomitant]
  9. XATRAL [Concomitant]
  10. ROCALTROL [Concomitant]
  11. AMLODIPINE [Concomitant]

REACTIONS (16)
  - ABDOMINAL PAIN [None]
  - ALOPECIA [None]
  - BLOOD CREATININE INCREASED [None]
  - CEREBRAL HAEMORRHAGE [None]
  - COAGULOPATHY [None]
  - DIALYSIS [None]
  - EATING DISORDER [None]
  - ENTEROCOCCAL SEPSIS [None]
  - FUNGAL SEPSIS [None]
  - GRAFT DYSFUNCTION [None]
  - HYPERKALAEMIA [None]
  - MULTI-ORGAN DISORDER [None]
  - MULTI-ORGAN FAILURE [None]
  - PANCYTOPENIA [None]
  - POLYARTHRITIS [None]
  - VOMITING [None]
